FAERS Safety Report 10065513 (Version 2)
Quarter: 2014Q2

REPORT INFORMATION
  Report Type: Spontaneous
  Country: US (occurrence: US)
  Receive Date: 20140408
  Receipt Date: 20140617
  Transmission Date: 20141212
  Serious: No
  Sender: FDA-Public Use
  Company Number: US-BAYER-2014-051371

PATIENT
  Age: 65 Year
  Sex: Male

DRUGS (5)
  1. LEVITRA [Suspect]
     Indication: ERECTILE DYSFUNCTION
     Dosage: 1-20 MG, 2-3 TIMES PER MONTH
     Route: 048
  2. AZOR [AMLODIPINE BESILATE,OLMESARTAN MEDOXOMIL] [Concomitant]
     Indication: HYPERTENSION
     Dosage: EVERY DAY BEGAN TAKING APPROXIMATELY 3 YEARS
  3. VOLTAREN [Concomitant]
     Indication: OSTEOARTHRITIS
     Dosage: PRN, BEGAN USING 4 YEARS AGO
  4. VOLTAREN [Concomitant]
     Indication: ARTHRITIS
  5. SAW PALMETTO [Concomitant]
     Indication: PHYTOTHERAPY

REACTIONS (3)
  - Nasal congestion [None]
  - Headache [None]
  - Suspected counterfeit product [None]
